FAERS Safety Report 9781406 (Version 1)
Quarter: 2013Q4

REPORT INFORMATION
  Report Type: Spontaneous
  Country: US (occurrence: US)
  Receive Date: 20131224
  Receipt Date: 20131224
  Transmission Date: 20140711
  Serious: Yes (Other)
  Sender: FDA-Public Use
  Company Number: US-GILEAD-2013-0090557

PATIENT
  Sex: Male

DRUGS (4)
  1. LETAIRIS [Suspect]
     Indication: PRODUCT USED FOR UNKNOWN INDICATION
     Dosage: 5 MG, QD
     Route: 065
     Dates: start: 20111104
  2. TYVASO [Concomitant]
  3. OXYGEN [Concomitant]
     Dosage: 10 L (DF), UNK
  4. OXYGEN [Concomitant]
     Dosage: 5-6 L/M

REACTIONS (4)
  - Tracheostomy [Unknown]
  - Increased appetite [Unknown]
  - Oxygen saturation increased [Unknown]
  - Dyspnoea [Unknown]
